FAERS Safety Report 7494530-6 (Version None)
Quarter: 2011Q2

REPORT INFORMATION
  Report Type: 
  Country: None (occurrence: None)
  Receive Date: 20110520
  Receipt Date: 20110509
  Transmission Date: 20111010
  Serious: Yes (Other)
  Sender: FDA-Public Use
  Company Number: PHHY2011CA25481

PATIENT
  Sex: Male

DRUGS (7)
  1. LIPITOR [Concomitant]
     Dosage: 20 MG
  2. ZOLEDRONIC ACID [Suspect]
     Indication: OSTEOPOROSIS
     Dosage: 5 MG/100ML
     Route: 042
     Dates: start: 20100412
  3. GLUCOSAMINE [Concomitant]
     Dosage: 1000 MG
  4. PERINDOPRIL ERBUMINE [Concomitant]
     Dosage: 2 MG
  5. ZOLEDRONIC ACID [Suspect]
     Dosage: 5 MG/100ML
     Route: 042
     Dates: start: 20110427
  6. ARICEPT [Concomitant]
     Dosage: 1 MG
  7. WARFARIN SODIUM [Concomitant]
     Dosage: 1 MG

REACTIONS (4)
  - SPINAL COMPRESSION FRACTURE [None]
  - BACK PAIN [None]
  - FALL [None]
  - TENDERNESS [None]
